FAERS Safety Report 4941470-X (Version None)
Quarter: 2006Q1

REPORT INFORMATION
  Report Type: 
  Country: None (occurrence: None)
  Receive Date: 20060313
  Receipt Date: 20060301
  Transmission Date: 20060701
  Serious: Yes (Death, Other)
  Sender: FDA-Public Use
  Company Number: PHBS2006GR03238

PATIENT
  Age: 56 Year
  Sex: Female

DRUGS (1)
  1. ZOMETA [Suspect]
     Indication: NEOPLASM MALIGNANT
     Route: 065

REACTIONS (5)
  - IMPAIRED HEALING [None]
  - INFECTION [None]
  - MALIGNANT NEOPLASM PROGRESSION [None]
  - POST PROCEDURAL FISTULA [None]
  - TOOTH EXTRACTION [None]
